FAERS Safety Report 23231804 (Version 1)
Quarter: 2023Q4

REPORT INFORMATION
  Report Type: Spontaneous
  Country: US (occurrence: None)
  Receive Date: 20231124
  Receipt Date: 20231124
  Transmission Date: 20240110
  Serious: Yes (Hospitalization)
  Sender: FDA-Public Use
  Company Number: None

PATIENT
  Sex: Male

DRUGS (5)
  1. PULMOZYME [Suspect]
     Active Substance: DORNASE ALFA
     Indication: Cystic fibrosis
     Dosage: OTHER QUANTITY : 2.5 MG/2.5ML;?INALE 2.5 MG VIA NEBULIZER ONCE DAILY?
     Route: 055
     Dates: start: 20160204
  2. COMPLETE FORM D5000 SOFTGEL [Concomitant]
  3. PREVACID [Concomitant]
  4. TOBRAMYCIN [Concomitant]
     Active Substance: TOBRAMYCIN
  5. ZYRTEC [Concomitant]

REACTIONS (1)
  - Pneumonia [None]
